FAERS Safety Report 5931922-8 (Version None)
Quarter: 2008Q4

REPORT INFORMATION
  Report Type: 
  Country: None (occurrence: None)
  Receive Date: 20081027
  Receipt Date: 20081016
  Transmission Date: 20090506
  Serious: Yes (Hospitalization)
  Sender: FDA-Public Use
  Company Number: FR-PFIZER INC-2008087794

PATIENT
  Sex: Female

DRUGS (3)
  1. SOLU-MEDROL [Suspect]
     Indication: PREMEDICATION
     Route: 042
     Dates: start: 20080724, end: 20080724
  2. DOXORUBICIN HCL [Suspect]
     Indication: OVARIAN CANCER
     Dosage: DAILY DOSE:79MG-FREQ:DAILY
     Route: 042
     Dates: start: 20080627, end: 20080724
  3. PLITICAN [Suspect]
     Indication: PREMEDICATION
     Route: 042
     Dates: start: 20080724, end: 20080724

REACTIONS (1)
  - RASH [None]
